FAERS Safety Report 15902486 (Version 1)
Quarter: 2019Q1

REPORT INFORMATION
  Report Type: Spontaneous
  Country: US (occurrence: US)
  Receive Date: 20190201
  Receipt Date: 20190201
  Transmission Date: 20190417
  Serious: Yes (Hospitalization)
  Sender: FDA-Public Use
  Company Number: US-NOVOPROD-644552

PATIENT
  Age: 63 Year
  Sex: Male
  Weight: 84.35 kg

DRUGS (3)
  1. ASPIRIN                            /00002701/ [Concomitant]
     Active Substance: ASPIRIN
     Indication: PRODUCT USED FOR UNKNOWN INDICATION
     Dosage: UNK
     Route: 065
  2. ENALAPRIL [Concomitant]
     Active Substance: ENALAPRIL
     Indication: PRODUCT USED FOR UNKNOWN INDICATION
     Dosage: UNK
     Route: 065
  3. NOVOLOG [Suspect]
     Active Substance: INSULIN ASPART
     Indication: DIABETES MELLITUS
     Dosage: SLIDING SCALE (15-20 UNITS)
     Route: 058

REACTIONS (5)
  - Blood glucose decreased [Not Recovered/Not Resolved]
  - Haematemesis [Recovered/Resolved]
  - Blood glucose increased [Not Recovered/Not Resolved]
  - Drug effect delayed [Unknown]
  - Drug clearance decreased [Unknown]
